FAERS Safety Report 7169377-0 (Version None)
Quarter: 2010Q4

REPORT INFORMATION
  Report Type: 
  Country: None (occurrence: None)
  Receive Date: 20101216
  Receipt Date: 20100111
  Transmission Date: 20110411
  Serious: No
  Sender: FDA-Public Use
  Company Number: US-AMGEN-KDL385294

PATIENT

DRUGS (1)
  1. ENBREL [Suspect]
     Indication: RHEUMATOID ARTHRITIS
     Dosage: 50 MG, QWK
     Route: 058
     Dates: start: 20051201

REACTIONS (7)
  - BRONCHITIS [None]
  - FEELING HOT [None]
  - IMPAIRED HEALING [None]
  - LACERATION [None]
  - OROPHARYNGEAL PAIN [None]
  - PNEUMONIA [None]
  - WOUND COMPLICATION [None]
